FAERS Safety Report 9413833 (Version 1)
Quarter: 2013Q3

REPORT INFORMATION
  Report Type: Spontaneous
  Country: DE (occurrence: None)
  Receive Date: 20130719
  Receipt Date: 20130719
  Transmission Date: 20140515
  Serious: Yes (Hospitalization)
  Sender: FDA-Public Use
  Company Number: 1302-249

PATIENT
  Age: 76 Year
  Sex: Male

DRUGS (7)
  1. VEGF TRAP-EYE (INJECTION) (VEGF TRAP) [Suspect]
     Indication: DIABETIC RETINAL OEDEMA
     Dosage: 2 MG, 1 IN 8 WK
     Route: 031
     Dates: start: 20120316, end: 20121221
  2. HERBESSERR (DILTIAZEM HYDROCHLORIDE) [Concomitant]
  3. BAYASPIRIN (ACETYLSALICYLIC ACID) (ACETYLSALICYLIC ACID) [Concomitant]
  4. PLETAAL (CILOSTAZOL) TABLET [Concomitant]
  5. JANUVIA (SITAGLIPTIN PHOSPHATE) (TABLET) [Concomitant]
  6. NOVORAPID (INSULIN ASPART) [Concomitant]
  7. LYRICA (PREGABALIN) (CAPSULE) [Concomitant]

REACTIONS (1)
  - Peripheral arterial occlusive disease [None]
